FAERS Safety Report 8521584-8 (Version None)
Quarter: 2012Q3

REPORT INFORMATION
  Report Type: 
  Country: None (occurrence: None)
  Receive Date: 20120719
  Receipt Date: 20120713
  Transmission Date: 20120928
  Serious: Yes (Hospitalization, Other)
  Sender: FDA-Public Use
  Company Number: PHHY2009JP26404

PATIENT
  Sex: Female
  Weight: 154 kg

DRUGS (27)
  1. TASIGNA [Suspect]
     Indication: CHRONIC MYELOID LEUKAEMIA
     Dosage: 400 MG, DAILY
     Route: 048
     Dates: start: 20090612, end: 20090714
  2. TASIGNA [Suspect]
     Dosage: 200 MG, DAILY
     Route: 048
     Dates: start: 20100728
  3. VOLTAREN [Concomitant]
     Dosage: UNK
     Dates: start: 20090704
  4. LEVOTHYROXINE SODIUM [Concomitant]
     Dosage: 50 UG, DAILY
     Route: 048
     Dates: start: 20090101
  5. LAC B [Concomitant]
     Dosage: 2 G, DAILY
     Route: 048
     Dates: start: 20090101
  6. FLOMAX [Concomitant]
     Indication: PROPHYLAXIS
     Dosage: 300 MG, DAILY
     Dates: start: 20100728, end: 20100802
  7. TASIGNA [Suspect]
     Dosage: 400 MG, DAILY
     Route: 048
     Dates: start: 20101006, end: 20111005
  8. TASIGNA [Suspect]
     Dosage: 400 MG, DAILY
     Route: 048
     Dates: start: 20111012
  9. TASIGNA [Suspect]
     Dosage: 800 MG, DAILY
     Route: 048
     Dates: start: 20090722, end: 20090923
  10. TASIGNA [Suspect]
     Dosage: 400 MG, DAILY
     Route: 048
     Dates: start: 20100722, end: 20100727
  11. CEFDINIR [Concomitant]
     Dosage: 200 MG, DAILY
     Route: 048
     Dates: start: 20090708, end: 20090729
  12. LANSOPRAZOLE [Concomitant]
     Indication: PROPHYLAXIS
     Dosage: 15 MG, DAILY
     Route: 048
     Dates: start: 20090704, end: 20090915
  13. COLCHICINE [Concomitant]
     Dosage: UNK
     Route: 048
     Dates: start: 20090624, end: 20090630
  14. MYONAL [Concomitant]
     Dosage: 100 MG, DAILY
     Route: 048
     Dates: start: 20100701, end: 20100718
  15. TASIGNA [Suspect]
     Dosage: 600 MG, DAILY
     Route: 048
     Dates: start: 20090924, end: 20100702
  16. TASIGNA [Suspect]
     Dosage: 200 MG AND 400 MG DAILY ALTERNATELY
     Route: 048
     Dates: start: 20100811, end: 20101005
  17. KETOPROFEN [Concomitant]
     Dosage: UNK
     Route: 062
     Dates: start: 20090630, end: 20090715
  18. TOPSYM [Concomitant]
     Dosage: UNK UKN, UNK
     Dates: start: 20090704
  19. DIFLUCAN [Concomitant]
     Indication: PROPHYLAXIS
     Dosage: 100 MG, DAILY
     Route: 048
     Dates: start: 20090101, end: 20090715
  20. URSO 250 [Concomitant]
     Dosage: 1 G, DAILY
     Route: 048
     Dates: start: 20090101
  21. TASIGNA [Suspect]
     Dosage: 600 MG, DAILY
     Route: 048
     Dates: start: 20090715, end: 20090721
  22. SULFAMETHOXAZOLE AND TRIMETHOPRIM [Concomitant]
     Indication: PROPHYLAXIS
     Dosage: 1 G, DAILY
     Route: 048
     Dates: start: 20090101, end: 20100414
  23. URSO 250 [Concomitant]
     Dosage: 200 MG, DAILY
     Route: 048
     Dates: start: 20090101
  24. LEVOTHYROXINE SODIUM [Concomitant]
     Dosage: 200 MG, DAILY
     Route: 048
     Dates: start: 20090101
  25. SELBEX [Concomitant]
     Indication: PROPHYLAXIS
     Dosage: 150 MG, DAILY
     Route: 048
     Dates: start: 20090526, end: 20090630
  26. LOXONIN [Concomitant]
     Dosage: 180 MG, DAILY
     Route: 048
     Dates: start: 20090618, end: 20090916
  27. FUCIDINE CAP [Concomitant]
     Dosage: UNK UKN, UNK
     Dates: start: 20090711

REACTIONS (5)
  - PULMONARY OEDEMA [None]
  - PNEUMONIA [None]
  - ERYTHEMA NODOSUM [None]
  - ENTEROCOLITIS [None]
  - HYPERTENSION [None]
